FAERS Safety Report 4967304-5 (Version None)
Quarter: 2006Q2

REPORT INFORMATION
  Report Type: 
  Country: None (occurrence: None)
  Receive Date: 20060404
  Receipt Date: 20060320
  Transmission Date: 20061013
  Serious: Yes (Death, Hospitalization)
  Sender: FDA-Public Use
  Company Number: GXKR2006US01634

PATIENT
  Age: 20 Year
  Sex: Male
  Weight: 66 kg

DRUGS (13)
  1. ITRACONAZOLE [Suspect]
     Indication: ANTIFUNGAL PROPHYLAXIS
     Dosage: 200 MG, BID,
  2. SIROLIMUS (SIROLIMUS) [Suspect]
     Indication: PROPHYLAXIS AGAINST TRANSPLANT REJECTION
     Dosage: SEE IMAGE
  3. SIROLIMUS (SIROLIMUS) [Suspect]
     Indication: PROPHYLAXIS AGAINST TRANSPLANT REJECTION
     Dosage: SEE IMAGE
  4. SIROLIMUS (SIROLIMUS) [Suspect]
     Indication: PROPHYLAXIS AGAINST TRANSPLANT REJECTION
     Dosage: SEE IMAGE
  5. SIROLIMUS (SIROLIMUS) [Suspect]
     Indication: PROPHYLAXIS AGAINST TRANSPLANT REJECTION
     Dosage: SEE IMAGE
  6. SIROLIMUS (SIROLIMUS) [Suspect]
     Indication: PROPHYLAXIS AGAINST TRANSPLANT REJECTION
     Dosage: SEE IMAGE
  7. VORICONAZOLE (VORICONAZOLE) [Suspect]
     Indication: BRONCHOPULMONARY ASPERGILLOSIS
     Dosage: 260 MG, BID, INTRAVENOUS
     Route: 042
  8. MYCOPHENOLATE MOFETIL [Concomitant]
  9. OXYBUTYNIN CHLORIDE [Concomitant]
  10. PENICILLIN-VK [Concomitant]
  11. PANTOPRAZOLE SODIUM [Concomitant]
  12. MORPHINE [Concomitant]
  13. CIDOFOVIR (CIDOFOVIR) [Concomitant]

REACTIONS (20)
  - ADENOVIRUS INFECTION [None]
  - BLOOD CREATININE INCREASED [None]
  - CARDIAC FAILURE ACUTE [None]
  - CARDIOMEGALY [None]
  - DRUG INTERACTION [None]
  - DRUG LEVEL ABOVE THERAPEUTIC [None]
  - DRUG LEVEL INCREASED [None]
  - ECCHYMOSIS [None]
  - GASTRITIS [None]
  - HEPATIC ENZYME INCREASED [None]
  - HYDRONEPHROSIS [None]
  - IMMUNOSUPPRESSANT DRUG LEVEL INCREASED [None]
  - LARGE INTESTINAL ULCER [None]
  - OESOPHAGITIS ULCERATIVE [None]
  - ORGAN FAILURE [None]
  - PANCYTOPENIA [None]
  - PERICARDIAL EFFUSION [None]
  - PETECHIAE [None]
  - PLEURAL EFFUSION [None]
  - PULMONARY CONGESTION [None]
